FAERS Safety Report 5460358-1 (Version None)
Quarter: 2007Q3

REPORT INFORMATION
  Report Type: 
  Country: None (occurrence: None)
  Receive Date: 20070919
  Receipt Date: 20070907
  Transmission Date: 20080115
  Serious: Yes (Hospitalization, Disabling, Other)
  Sender: FDA-Public Use
  Company Number: JP-PFIZER INC-2007071086

PATIENT
  Sex: Male

DRUGS (7)
  1. LIPITOR [Suspect]
     Indication: HYPERCHOLESTEROLAEMIA
     Route: 048
  2. WARFARIN SODIUM [Concomitant]
     Indication: CEREBRAL INFARCTION
     Route: 048
  3. MIGLITOL [Concomitant]
     Indication: DIABETES MELLITUS
     Route: 048
  4. BUFFERIN [Concomitant]
     Indication: CEREBRAL INFARCTION
     Route: 048
  5. FAMOTIDINE [Concomitant]
     Indication: GASTRITIS
     Route: 048
  6. GASMOTIN [Concomitant]
     Indication: GASTRITIS
     Route: 048
  7. KAKKON-TO [Concomitant]
     Route: 048

REACTIONS (8)
  - ASTHENIA [None]
  - BLOOD CREATINE PHOSPHOKINASE INCREASED [None]
  - BLOOD CREATININE INCREASED [None]
  - BLOOD UREA INCREASED [None]
  - CHROMATURIA [None]
  - DEHYDRATION [None]
  - FATIGUE [None]
  - NAUSEA [None]
